FAERS Safety Report 18400521 (Version 1)
Quarter: 2020Q4

REPORT INFORMATION
  Report Type: Spontaneous
  Country: US (occurrence: US)
  Receive Date: 20201019
  Receipt Date: 20201019
  Transmission Date: 20210114
  Serious: Yes (Other)
  Sender: FDA-Public Use
  Company Number: US-PFIZER INC-2015164032

PATIENT
  Age: 71 Year
  Sex: Female

DRUGS (15)
  1. CLONAZEPAM. [Concomitant]
     Active Substance: CLONAZEPAM
     Dosage: 0.625 MG, 1X/DAY [ONE AND ONE QUARTER TABLETS AT BEDTIME]
  2. TYLENOL [Concomitant]
     Active Substance: ACETAMINOPHEN
     Dosage: 500 MG, 3X/DAY
  3. OSTEO BI-FLEX [CHONDROITIN SULFATE;GLUCOSAMINE HYDROCHLORIDE] [Concomitant]
     Dosage: UNK, DAILY (1 PER DAY)
  4. LYRICA [Suspect]
     Active Substance: PREGABALIN
     Dosage: 100 MG, 1X/DAY [1 CAPSULE BY MOUTH NIGHTLY/AT BEDTIME]
     Route: 048
  5. LYRICA [Suspect]
     Active Substance: PREGABALIN
     Indication: NEUROPATHY PERIPHERAL
     Dosage: 25 MG, 2X/DAY
     Route: 048
  6. FLORAJEN 3 [Concomitant]
     Active Substance: PROBIOTICS NOS
     Dosage: UNK, DAILY (ONE PER DAY)
  7. MAGNESIUM OXIDE. [Concomitant]
     Active Substance: MAGNESIUM OXIDE
     Dosage: 400 MG, 2X/DAY
  8. ATENOLOL. [Concomitant]
     Active Substance: ATENOLOL
     Dosage: 50 MG, 2X/DAY [ONE HALF TABLET TWICE PER DAY]
  9. TIMOLOL MALEATE. [Concomitant]
     Active Substance: TIMOLOL MALEATE
     Dosage: 2 DROP, 2X/DAY (1 DROP IN EACH EYE TWICE PER DAY)
     Route: 047
  10. REPATHA [Concomitant]
     Active Substance: EVOLOCUMAB
     Dosage: 1 DF, UNK (ONE INJECTION EVERY 2 WEEKS)
  11. POTASSIUM GLUCONATE [Concomitant]
     Active Substance: POTASSIUM GLUCONATE
     Dosage: 595 MG, DAILY [ONE PER DAY]
  12. OMEPRAZOLE. [Concomitant]
     Active Substance: OMEPRAZOLE
     Dosage: 20.6 MG, 1X/DAY (ONE PER DAY)
  13. LYRICA [Suspect]
     Active Substance: PREGABALIN
     Dosage: 50 MG, 1X/DAY [1 CAPSULE BY MOUTH EVERY MORNING]
     Route: 048
  14. VALSARTAN HCTZ [Concomitant]
     Active Substance: HYDROCHLOROTHIAZIDE\VALSARTAN
     Dosage: UNK, 1X/DAY
  15. BETAMETHASONE. [Concomitant]
     Active Substance: BETAMETHASONE
     Dosage: UNK, 2X/DAY

REACTIONS (1)
  - Arteriovenous malformation [Unknown]
